FAERS Safety Report 5332800-8 (Version None)
Quarter: 2007Q2

REPORT INFORMATION
  Report Type: 
  Country: None (occurrence: None)
  Receive Date: 20070523
  Receipt Date: 20070515
  Transmission Date: 20071010
  Serious: Yes (Other)
  Sender: FDA-Public Use
  Company Number: US-PFIZER INC-2007040035

PATIENT
  Sex: Female
  Weight: 83.9 kg

DRUGS (5)
  1. LYRICA [Suspect]
     Indication: POST HERPETIC NEURALGIA
     Dates: start: 20070430, end: 20070502
  2. NEURONTIN [Suspect]
     Indication: POST HERPETIC NEURALGIA
  3. ATENOLOL [Concomitant]
  4. ESTROGEN NOS [Concomitant]
  5. DRUG, UNSPECIFIED [Concomitant]

REACTIONS (3)
  - NAUSEA [None]
  - TONGUE DISORDER [None]
  - VOMITING [None]
